FAERS Safety Report 7705065-7 (Version None)
Quarter: 2011Q3

REPORT INFORMATION
  Report Type: 
  Country: None (occurrence: None)
  Receive Date: 20110823
  Receipt Date: 20110816
  Transmission Date: 20111222
  Serious: No
  Sender: FDA-Public Use
  Company Number: US-MERCK-1108USA00532

PATIENT
  Age: 50 Year
  Sex: Male

DRUGS (4)
  1. ZOCOR [Suspect]
     Route: 048
     Dates: start: 20100101, end: 20110401
  2. CRESTOR [Suspect]
     Route: 065
     Dates: start: 20110419, end: 20110713
  3. PLAVIX [Concomitant]
     Route: 065
  4. VYTORIN [Suspect]
     Route: 048
     Dates: start: 20110803

REACTIONS (3)
  - ASPARTATE AMINOTRANSFERASE INCREASED [None]
  - ALANINE AMINOTRANSFERASE INCREASED [None]
  - HEPATIC ENZYME INCREASED [None]
